FAERS Safety Report 21212689 (Version 1)
Quarter: 2022Q3

REPORT INFORMATION
  Report Type: Spontaneous
  Country: US (occurrence: None)
  Receive Date: 20220813
  Receipt Date: 20220813
  Transmission Date: 20221027
  Serious: Yes (Disabling)
  Sender: FDA-Public Use
  Company Number: None

PATIENT
  Age: 62 Year
  Sex: Female
  Weight: 58.97 kg

DRUGS (4)
  1. NEURONTIN [Suspect]
     Active Substance: GABAPENTIN
  2. UNSPECIFIED INGREDIENT [Suspect]
     Active Substance: UNSPECIFIED INGREDIENT
  3. FENTANYL [Suspect]
     Active Substance: FENTANYL
  4. Estradiolt mg/day [Concomitant]

REACTIONS (16)
  - Feeling abnormal [None]
  - Tooth disorder [None]
  - Tooth fracture [None]
  - Tooth extraction [None]
  - Amnesia [None]
  - Vision blurred [None]
  - Peripheral swelling [None]
  - Pain [None]
  - Withdrawal syndrome [None]
  - Eye pain [None]
  - Agitation [None]
  - Headache [None]
  - Myalgia [None]
  - Formication [None]
  - Tinnitus [None]
  - Palpitations [None]

NARRATIVE: CASE EVENT DATE: 20010701
